FAERS Safety Report 17837041 (Version 1)
Quarter: 2020Q2

REPORT INFORMATION
  Report Type: Spontaneous
  Country: NL (occurrence: NL)
  Receive Date: 20200528
  Receipt Date: 20200528
  Transmission Date: 20200714
  Serious: Yes (Other)
  Sender: FDA-Public Use
  Company Number: NL-MYLANLABS-2020M1052096

PATIENT
  Sex: Female
  Weight: 92 kg

DRUGS (1)
  1. AZELASTINE/FLUTICASONE [Suspect]
     Active Substance: AZELASTINE HYDROCHLORIDE\FLUTICASONE PROPIONATE
     Indication: SEASONAL ALLERGY
     Dosage: 1 FURTHEST PER NOSTRIL 2DD
     Dates: start: 20200427, end: 20200428

REACTIONS (1)
  - Eye haemorrhage [Recovering/Resolving]
